FAERS Safety Report 5046840-X (Version None)
Quarter: 2006Q3

REPORT INFORMATION
  Report Type: 
  Country: None (occurrence: None)
  Receive Date: 20060705
  Receipt Date: 20060705
  Transmission Date: 20061208
  Serious: No
  Sender: FDA-Public Use
  Company Number: None

PATIENT
  Age: 70 Year
  Sex: Female

DRUGS (1)
  1. HEPARIN [Suspect]
     Dosage: TITRATED
     Dates: start: 20060315, end: 20060401

REACTIONS (5)
  - ANTIBODY TEST POSITIVE [None]
  - ATRIAL THROMBOSIS [None]
  - HEPARIN-INDUCED THROMBOCYTOPENIA TEST [None]
  - MASS [None]
  - THROMBOCYTOPENIA [None]
